FAERS Safety Report 5129006-4 (Version None)
Quarter: 2006Q4

REPORT INFORMATION
  Report Type: 
  Country: None (occurrence: None)
  Receive Date: 20061017
  Receipt Date: 20061009
  Transmission Date: 20070319
  Serious: Yes (Hospitalization)
  Sender: FDA-Public Use
  Company Number: DK-BOEHRINGER INGELHEIM PHARMACEUTICALS, INC.-2006-DE-05328GD

PATIENT

DRUGS (4)
  1. ASPIRIN [Suspect]
     Indication: THROMBOSIS PROPHYLAXIS
  2. DIPYRIDAMOLE [Suspect]
     Indication: THROMBOSIS PROPHYLAXIS
  3. CLOPIDOGREL [Suspect]
     Indication: THROMBOSIS PROPHYLAXIS
  4. VITAMIN K ANTAGONIST [Suspect]
     Indication: THROMBOSIS PROPHYLAXIS

REACTIONS (1)
  - UPPER GASTROINTESTINAL HAEMORRHAGE [None]
